FAERS Safety Report 5721078-9 (Version None)
Quarter: 2008Q2

REPORT INFORMATION
  Report Type: 
  Country: None (occurrence: None)
  Receive Date: 20080429
  Receipt Date: 20080428
  Transmission Date: 20081010
  Serious: No
  Sender: FDA-Public Use
  Company Number: A0680111A

PATIENT
  Age: 41 Year

DRUGS (2)
  1. ALLI [Suspect]
     Indication: WEIGHT LOSS DIET
     Route: 048
     Dates: start: 20070801
  2. UNSPECIFIED MEDICATION [Suspect]

REACTIONS (20)
  - ABDOMINAL PAIN UPPER [None]
  - ABNORMAL FAECES [None]
  - DIARRHOEA [None]
  - DISTURBANCE IN ATTENTION [None]
  - DRUG INEFFECTIVE [None]
  - DRY MOUTH [None]
  - EATING DISORDER [None]
  - FAECAL INCONTINENCE [None]
  - FLATULENCE [None]
  - FRUSTRATION [None]
  - GASTROINTESTINAL DISORDER [None]
  - HEADACHE [None]
  - HUNGER [None]
  - MENTAL IMPAIRMENT [None]
  - MIGRAINE [None]
  - RECTAL DISCHARGE [None]
  - STEATORRHOEA [None]
  - THIRST [None]
  - WEIGHT FLUCTUATION [None]
  - WEIGHT INCREASED [None]
